FAERS Safety Report 10527245 (Version 1)
Quarter: 2014Q4

REPORT INFORMATION
  Report Type: Report from Study
  Country: KR (occurrence: KR)
  Receive Date: 20141020
  Receipt Date: 20141020
  Transmission Date: 20150528
  Serious: Yes (Hospitalization)
  Sender: FDA-Public Use
  Company Number: KR-SA-2014SA140582

PATIENT
  Age: 59 Year
  Sex: Female

DRUGS (1)
  1. LANTUS [Suspect]
     Active Substance: INSULIN GLARGINE
     Indication: DIABETES MELLITUS
     Route: 058

REACTIONS (2)
  - Musculoskeletal stiffness [Unknown]
  - Chronic sinusitis [Unknown]

NARRATIVE: CASE EVENT DATE: 2014
